FAERS Safety Report 5836889-9 (Version None)
Quarter: 2008Q3

REPORT INFORMATION
  Report Type: 
  Country: None (occurrence: None)
  Receive Date: 20080805
  Receipt Date: 20080724
  Transmission Date: 20090109
  Serious: Yes (Hospitalization, Other)
  Sender: FDA-Public Use
  Company Number: WAES 0806USA02135

PATIENT
  Age: 33 Year
  Sex: Male
  Weight: 60.782 kg

DRUGS (22)
  1. CAP VORINOSTAT UNK [Suspect]
     Indication: ACUTE MYELOID LEUKAEMIA
     Dosage: 400 MG/DAILY/PO
     Route: 048
     Dates: start: 20080529, end: 20080611
  2. INFUSION (FORM) DECITABINE UNK [Suspect]
     Indication: ACUTE MYELOID LEUKAEMIA
     Dosage: 34 MG/DAILY/IV
     Route: 042
     Dates: start: 20080529, end: 20080602
  3. BENADRYL [Concomitant]
  4. PERCOCET [Concomitant]
  5. PHENERGAN (PROMETHAZINE HYDROCHL [Concomitant]
  6. PROGASTRIT (ALUMINUM HYDROXIDE [Concomitant]
  7. PROTONIX [Concomitant]
  8. REGLAN [Concomitant]
  9. ACETAMINOPHEN [Concomitant]
  10. ACYCLOVIR [Concomitant]
  11. CEFEPIME [Concomitant]
  12. DOCUSATE SODIUM [Concomitant]
  13. HYDROCORTISONE [Concomitant]
  14. HYDROMORPHONE HYDROCHLORIDE [Concomitant]
  15. LORAZEPAM [Concomitant]
  16. ONDANSETRON [Concomitant]
  17. PROCHLORPERAZINE [Concomitant]
  18. RANITIDINE [Concomitant]
  19. SENNA [Concomitant]
  20. VANCOMYCIN [Concomitant]
  21. VORICONAZOLE [Concomitant]
  22. ZOLPIDEM TARTRATE [Concomitant]

REACTIONS (24)
  - ABSCESS [None]
  - ASCITES [None]
  - BACTERIAL SEPSIS [None]
  - CARDIAC FAILURE [None]
  - CELLULITIS [None]
  - ELECTROCARDIOGRAM ST-T CHANGE [None]
  - ELECTROCARDIOGRAM T WAVE INVERSION [None]
  - ERYTHEMA [None]
  - HAEMOGLOBIN DECREASED [None]
  - HAEMORRHOIDS [None]
  - HEPATIC LESION [None]
  - LEUKAEMIC INFILTRATION PULMONARY [None]
  - MITRAL VALVE INCOMPETENCE [None]
  - OEDEMA PERIPHERAL [None]
  - PAIN [None]
  - PANCYTOPENIA [None]
  - PNEUMONIA ASPIRATION [None]
  - PNEUMONIA KLEBSIELLA [None]
  - PROTEIN TOTAL DECREASED [None]
  - RENAL DISORDER [None]
  - RIGHT VENTRICULAR SYSTOLIC PRESSURE DECREASED [None]
  - SKIN LESION [None]
  - SPLEEN DISORDER [None]
  - VENTRICULAR HYPOKINESIA [None]
